FAERS Safety Report 9373031 (Version 1)
Quarter: 2013Q2

REPORT INFORMATION
  Report Type: Spontaneous
  Country: US (occurrence: US)
  Receive Date: 20130627
  Receipt Date: 20130627
  Transmission Date: 20140414
  Serious: No
  Sender: FDA-Public Use
  Company Number: US-B.I. PHARMACEUTICALS,INC./RIDGEFIELD-2013-BI-17804BP

PATIENT
  Age: 45 Year
  Sex: Female

DRUGS (6)
  1. COMBIVENT [Suspect]
     Indication: CHRONIC OBSTRUCTIVE PULMONARY DISEASE
     Dosage: STRENGTH: 20 MCG / 100 MCG; DAILY DOSE: 80 MCG/ 400 MCG
     Route: 055
     Dates: start: 201303
  2. NEURONTIN [Concomitant]
     Indication: PAIN
     Route: 048
  3. TRAZODONE [Concomitant]
  4. CELEXA [Concomitant]
     Indication: DEPRESSION
     Route: 048
  5. PRILOSEC [Concomitant]
  6. ULTRAM [Concomitant]
     Indication: PAIN
     Route: 048

REACTIONS (2)
  - Vision blurred [Not Recovered/Not Resolved]
  - Anxiety [Not Recovered/Not Resolved]
